FAERS Safety Report 4823260-1 (Version None)
Quarter: 2005Q4

REPORT INFORMATION
  Report Type: 
  Country: None (occurrence: None)
  Receive Date: 20051108
  Receipt Date: 20051108
  Transmission Date: 20060501
  Serious: Yes (Other)
  Sender: FDA-Public Use
  Company Number: None

PATIENT
  Sex: Female
  Weight: 71.6683 kg

DRUGS (1)
  1. ORTHO EVRA [Suspect]
     Indication: CONTRACEPTION
     Dosage: 1 PATCH    WEEKLY X 3WKS   TRANSDERMA
     Route: 062
     Dates: start: 20040908, end: 20051124

REACTIONS (1)
  - PULMONARY EMBOLISM [None]
